FAERS Safety Report 9764295 (Version 1)
Quarter: 2013Q4

REPORT INFORMATION
  Report Type: Spontaneous
  Country: US (occurrence: US)
  Receive Date: 20131217
  Receipt Date: 20131217
  Transmission Date: 20140711
  Serious: Yes (Other)
  Sender: FDA-Public Use
  Company Number: US-AMGEN-USASP2013088053

PATIENT
  Age: 70 Year
  Sex: Male

DRUGS (1)
  1. ENBREL [Suspect]
     Indication: PSORIATIC ARTHROPATHY
     Dosage: 25 MG, EVERY 4 DAYS
     Route: 065
     Dates: start: 20000901

REACTIONS (2)
  - VIIth nerve paralysis [Not Recovered/Not Resolved]
  - Urticaria [Not Recovered/Not Resolved]
